FAERS Safety Report 13733842 (Version 1)
Quarter: 2017Q3

REPORT INFORMATION
  Report Type: Spontaneous
  Country: US (occurrence: US)
  Receive Date: 20170707
  Receipt Date: 20170707
  Transmission Date: 20171127
  Serious: Yes (Other)
  Sender: FDA-Public Use
  Company Number: US-PRINSTON PHARMACEUTICAL INC.-2017PRN00322

PATIENT
  Age: 46 Year
  Sex: Male
  Weight: 82.54 kg

DRUGS (4)
  1. LISINOPRIL. [Suspect]
     Active Substance: LISINOPRIL
     Indication: HYPERTENSION
     Dosage: 10 MG, 1X/DAY
     Route: 048
     Dates: start: 201702, end: 20170623
  2. SINGULAIR [Concomitant]
     Active Substance: MONTELUKAST SODIUM
     Dosage: 10 MG, UNK
  3. VALTREX [Concomitant]
     Active Substance: VALACYCLOVIR HYDROCHLORIDE
     Dosage: 500 MG, 1X/DAY
  4. UNSPECIFIED MEDICATION(S) VIA NEBULIZER [Concomitant]

REACTIONS (11)
  - Abdominal pain upper [Recovering/Resolving]
  - Parasitic gastroenteritis [Recovered/Resolved]
  - Colitis [Not Recovered/Not Resolved]
  - Headache [Recovering/Resolving]
  - Sinus disorder [Recovering/Resolving]
  - Gastrointestinal haemorrhage [Unknown]
  - Confusional state [Recovering/Resolving]
  - Pulmonary hypertension [Unknown]
  - Dysphagia [Recovering/Resolving]
  - Palpitations [Recovering/Resolving]
  - Upper respiratory tract congestion [Recovering/Resolving]

NARRATIVE: CASE EVENT DATE: 201703
